FAERS Safety Report 16078946 (Version 1)
Quarter: 2019Q1

REPORT INFORMATION
  Report Type: Report from Study
  Country: DE (occurrence: DE)
  Receive Date: 20190315
  Receipt Date: 20190315
  Transmission Date: 20190418
  Serious: Yes (Life-Threatening, Hospitalization, Other)
  Sender: FDA-Public Use
  Company Number: DE-GLAXOSMITHKLINE-DE2019045765

PATIENT
  Age: 36 Year
  Sex: Female

DRUGS (6)
  1. TEGRETAL [Suspect]
     Active Substance: CARBAMAZEPINE
     Dosage: 400 MG, QID
     Route: 048
     Dates: start: 20010131, end: 20010131
  2. LEPONEX / CLOZARIL (CLOZAPINE) [Suspect]
     Active Substance: CLOZAPINE
     Dosage: 100MG/DAY
     Route: 048
     Dates: start: 20010209, end: 20010228
  3. RANITIDINE HYDROCHLORIDE. [Suspect]
     Active Substance: RANITIDINE HYDROCHLORIDE
     Indication: PRODUCT USED FOR UNKNOWN INDICATION
     Dosage: 300 MG, QID
     Route: 048
     Dates: start: 20010112, end: 20010307
  4. TEGRETAL [Suspect]
     Active Substance: CARBAMAZEPINE
     Dosage: 600 MG, QID
     Route: 048
     Dates: start: 20001229, end: 20010130
  5. LEPONEX / CLOZARIL (CLOZAPINE) [Suspect]
     Active Substance: CLOZAPINE
     Indication: SCHIZOPHRENIA
     Dosage: 12.5-75MG/DAY
     Route: 048
     Dates: start: 20010130, end: 20010208
  6. TEGRETAL [Suspect]
     Active Substance: CARBAMAZEPINE
     Indication: PRODUCT USED FOR UNKNOWN INDICATION
     Dosage: 200MG/DAY
     Route: 048
     Dates: start: 20010201, end: 20010305

REACTIONS (1)
  - Agranulocytosis [Recovered/Resolved]

NARRATIVE: CASE EVENT DATE: 20010228
